FAERS Safety Report 5075427-8 (Version None)
Quarter: 2006Q3

REPORT INFORMATION
  Report Type: 
  Country: None (occurrence: None)
  Receive Date: 20060807
  Receipt Date: 20060807
  Transmission Date: 20061208
  Serious: Yes (Other)
  Sender: FDA-Public Use
  Company Number: None

PATIENT
  Age: 17 Year
  Sex: Female
  Weight: 54.4316 kg

DRUGS (4)
  1. VICOPROFEN [Suspect]
     Indication: PROCEDURAL PAIN
     Dosage: 1 TABLET AS NEEDED EVERY 4 TO 6 HRS BY MOUTH
     Route: 048
     Dates: start: 20060724
  2. VICOPROFEN [Suspect]
     Indication: PROCEDURAL PAIN
     Dosage: 1 TABLET AS NEEDED EVERY 4 TO 6 HRS BY MOUTH
     Route: 048
     Dates: start: 20060725
  3. VICOPROFEN [Suspect]
     Indication: PROCEDURAL PAIN
     Dosage: 1 TABLET AS NEEDED EVERY 4 TO 6 HRS BY MOUTH
     Route: 048
     Dates: start: 20060726
  4. VICOPROFEN [Suspect]
     Indication: PROCEDURAL PAIN
     Dosage: 1 TABLET AS NEEDED EVERY 4 TO 6 HRS BY MOUTH
     Route: 048
     Dates: start: 20060727

REACTIONS (5)
  - DEPRESSED MOOD [None]
  - FEAR [None]
  - HALLUCINATION [None]
  - MOOD ALTERED [None]
  - UNEVALUABLE EVENT [None]
